FAERS Safety Report 8372806-8 (Version None)
Quarter: 2012Q2

REPORT INFORMATION
  Report Type: 
  Country: None (occurrence: None)
  Receive Date: 20120521
  Receipt Date: 20120509
  Transmission Date: 20120825
  Serious: Yes (Other)
  Sender: FDA-Public Use
  Company Number: US-SANOFI-AVENTIS-2012SA033117

PATIENT
  Age: 47 Year
  Sex: Male

DRUGS (2)
  1. ALLEGRA [Suspect]
  2. ALLEGRA [Suspect]

REACTIONS (5)
  - TENDERNESS [None]
  - THERMAL BURN [None]
  - PRURITUS [None]
  - SWELLING [None]
  - BLISTER [None]
